FAERS Safety Report 6344457-8 (Version None)
Quarter: 2009Q3

REPORT INFORMATION
  Report Type: 
  Country: None (occurrence: None)
  Receive Date: 20090908
  Receipt Date: 20090828
  Transmission Date: 20100115
  Serious: Yes (Hospitalization)
  Sender: FDA-Public Use
  Company Number: HU-WYE-H10758409

PATIENT
  Sex: Male
  Weight: 85 kg

DRUGS (4)
  1. TEMSIROLIMUS [Suspect]
     Indication: RENAL CELL CARCINOMA
     Route: 042
     Dates: start: 20090826, end: 20090826
  2. ENALAPRIL MALEATE [Concomitant]
  3. METOPROLOL [Concomitant]
  4. BEVACIZUMAB [Suspect]
     Indication: RENAL CELL CARCINOMA
     Route: 042
     Dates: start: 20090826, end: 20090826

REACTIONS (4)
  - BLOOD GLUCOSE INCREASED [None]
  - DERMATITIS ALLERGIC [None]
  - DIARRHOEA [None]
  - HEADACHE [None]
